FAERS Safety Report 8427721-8 (Version None)
Quarter: 2012Q2

REPORT INFORMATION
  Report Type: 
  Country: None (occurrence: None)
  Receive Date: 20120611
  Receipt Date: 20120604
  Transmission Date: 20120825
  Serious: Yes (Other)
  Sender: FDA-Public Use
  Company Number: US-BAXTER-2012BAX007588

PATIENT

DRUGS (1)
  1. ADVATE [Suspect]
     Indication: PROPHYLAXIS

REACTIONS (1)
  - POST PROCEDURAL INFECTION [None]
